FAERS Safety Report 12098912 (Version 1)
Quarter: 2016Q1

REPORT INFORMATION
  Report Type: Spontaneous
  Country: US (occurrence: US)
  Receive Date: 20160222
  Receipt Date: 20160222
  Transmission Date: 20160526
  Serious: No
  Sender: FDA-Public Use
  Company Number: US-TEVA-574154USA

PATIENT
  Age: 88 Year
  Sex: Female
  Weight: 65.83 kg

DRUGS (1)
  1. ALENDRONIC ACID [Suspect]
     Active Substance: ALENDRONIC ACID
     Dates: start: 20150602

REACTIONS (3)
  - Dyspepsia [Unknown]
  - Gait disturbance [Unknown]
  - Hypoaesthesia [Unknown]
